FAERS Safety Report 23518781 (Version 1)
Quarter: 2024Q1

REPORT INFORMATION
  Report Type: Spontaneous
  Country: JP (occurrence: JP)
  Receive Date: 20240213
  Receipt Date: 20240213
  Transmission Date: 20240410
  Serious: Yes (Death, Hospitalization)
  Sender: FDA-Public Use
  Company Number: JP-TAIHOP-2024-001189

PATIENT
  Age: 78 Year
  Sex: Male

DRUGS (3)
  1. LONSURF [Suspect]
     Active Substance: TIPIRACIL HYDROCHLORIDE\TRIFLURIDINE
     Indication: Colon cancer
     Dosage: FORM STRENGHT, DOSE, FREQUENCY AND CYCLE UNKNOWN
     Route: 048
  2. UNSPECIFIED INGREDIENT [Suspect]
     Active Substance: UNSPECIFIED INGREDIENT
     Indication: Metastases to central nervous system
     Dosage: FORM STRENGHT, DOSE, FREQUENCY AND CYCLE UNKNOWN
  3. UNSPECIFIED INGREDIENT [Suspect]
     Active Substance: UNSPECIFIED INGREDIENT
     Indication: Brain oedema

REACTIONS (3)
  - Pneumonia viral [Fatal]
  - Neutrophil count decreased [Unknown]
  - Sepsis [Unknown]
